FAERS Safety Report 5986378-6 (Version None)
Quarter: 2008Q4

REPORT INFORMATION
  Report Type: 
  Country: None (occurrence: None)
  Receive Date: 20081203
  Receipt Date: 20081125
  Transmission Date: 20090506
  Serious: Yes (Hospitalization)
  Sender: FDA-Public Use
  Company Number: 2008JP004689

PATIENT
  Age: 92 Year
  Sex: Male

DRUGS (6)
  1. VESICARE [Suspect]
     Dosage: 5 MG, UID/QD, ORAL
     Route: 048
     Dates: start: 20080903, end: 20080916
  2. URIEF(SILODOSLN) CAPSULE [Suspect]
     Indication: BENIGN PROSTATIC HYPERPLASIA
     Dosage: 4 MG, UID/QD, ORAL
     Route: 048
     Dates: start: 20080820
  3. LOXOPROFEN SODIUM (LOXOPROFEN SODIUM) TABLET [Concomitant]
  4. CELOOP TAIYO (TEPRENONE) TABLET [Concomitant]
  5. MUCODYNE (CARBOCISTEINE) TABLET [Concomitant]
  6. ALLELOCK (OLOPATADINE HYDROCHLORIDE) TABLET [Concomitant]

REACTIONS (4)
  - ASTHENIA [None]
  - PARKINSONISM [None]
  - URINARY RETENTION [None]
  - URINARY TRACT INFECTION [None]
